FAERS Safety Report 6578072-8 (Version None)
Quarter: 2010Q1

REPORT INFORMATION
  Report Type: 
  Country: None (occurrence: None)
  Receive Date: 20100211
  Receipt Date: 20100202
  Transmission Date: 20100710
  Serious: Yes (Other)
  Sender: FDA-Public Use
  Company Number: GB-BAYER-201014426GPV

PATIENT
  Age: 92 Year
  Sex: Male

DRUGS (18)
  1. ASPIRIN [Suspect]
     Indication: DRUG USE FOR UNKNOWN INDICATION
  2. MICARDIS [Suspect]
     Indication: DRUG USE FOR UNKNOWN INDICATION
  3. PANDEMRIX [Suspect]
     Indication: DRUG USE FOR UNKNOWN INDICATION
     Route: 030
     Dates: start: 20091205
  4. ZOPICLONE [Suspect]
     Indication: DRUG USE FOR UNKNOWN INDICATION
  5. DUTASTERIDE [Suspect]
     Indication: DRUG USE FOR UNKNOWN INDICATION
  6. BENDROFLUMETHIAZIDE [Suspect]
     Indication: DRUG USE FOR UNKNOWN INDICATION
  7. GABAPENTIN [Suspect]
     Indication: DRUG USE FOR UNKNOWN INDICATION
  8. MIRAPEX [Suspect]
     Indication: DRUG USE FOR UNKNOWN INDICATION
  9. ATENOLOL [Suspect]
     Indication: DRUG USE FOR UNKNOWN INDICATION
  10. PEPPERMINT OIL [Suspect]
     Indication: DRUG USE FOR UNKNOWN INDICATION
  11. MOVICOL [Suspect]
     Indication: DRUG USE FOR UNKNOWN INDICATION
  12. FELODIPINE [Suspect]
     Indication: DRUG USE FOR UNKNOWN INDICATION
  13. OTOMIZE [Suspect]
     Indication: DRUG USE FOR UNKNOWN INDICATION
  14. THROMBRAN [Suspect]
     Indication: DRUG USE FOR UNKNOWN INDICATION
  15. LANSOPRAZOLE [Suspect]
     Indication: DRUG USE FOR UNKNOWN INDICATION
  16. TAMSULOSIN [Suspect]
     Indication: DRUG USE FOR UNKNOWN INDICATION
     Route: 048
  17. INFLUENZA VIRUS VACCINE [Suspect]
     Indication: DRUG USE FOR UNKNOWN INDICATION
  18. RISEDRONE ACID [Suspect]
     Indication: DRUG USE FOR UNKNOWN INDICATION

REACTIONS (1)
  - SYNCOPE [None]
